FAERS Safety Report 8186779-4 (Version None)
Quarter: 2012Q1

REPORT INFORMATION
  Report Type: 
  Country: None (occurrence: None)
  Receive Date: 20120306
  Receipt Date: 20120306
  Transmission Date: 20120608
  Serious: Yes (Life-Threatening, Hospitalization, Other)
  Sender: FDA-Public Use
  Company Number: None

PATIENT
  Age: 88 Year
  Sex: Male

DRUGS (1)
  1. LISINOPRIL [Suspect]
     Dosage: 20.0 MG
     Route: 048

REACTIONS (3)
  - OROPHARYNGEAL PAIN [None]
  - SWOLLEN TONGUE [None]
  - DYSPHAGIA [None]
